FAERS Safety Report 14344605 (Version 2)
Quarter: 2018Q1

REPORT INFORMATION
  Report Type: Spontaneous
  Country: US (occurrence: US)
  Receive Date: 20180102
  Receipt Date: 20180214
  Transmission Date: 20180509
  Serious: Yes (Other)
  Sender: FDA-Public Use
  Company Number: US-AMGEN-USASP2017192829

PATIENT
  Age: 43 Year
  Sex: Female
  Weight: 122.45 kg

DRUGS (2)
  1. ENBREL [Suspect]
     Active Substance: ETANERCEPT
     Dosage: 50 MG, QWK
     Route: 058
     Dates: start: 20161101
  2. ENBREL [Suspect]
     Active Substance: ETANERCEPT
     Indication: PSORIATIC ARTHROPATHY
     Dosage: 50 MG, QWK
     Route: 065

REACTIONS (9)
  - Staphylococcal infection [Unknown]
  - Pain [Not Recovered/Not Resolved]
  - Drug effect decreased [Unknown]
  - Gait inability [Not Recovered/Not Resolved]
  - Wrong technique in product usage process [Unknown]
  - Decreased immune responsiveness [Unknown]
  - Mobility decreased [Not Recovered/Not Resolved]
  - Accidental exposure to product [Unknown]
  - Injection site haemorrhage [Unknown]

NARRATIVE: CASE EVENT DATE: 20171227
